FAERS Safety Report 7484726-1 (Version None)
Quarter: 2011Q1

REPORT INFORMATION
  Report Type: 
  Country: None (occurrence: None)
  Receive Date: 20110309
  Receipt Date: 20110207
  Transmission Date: 20110831
  Serious: Yes (Hospitalization)
  Sender: FDA-Public Use
  Company Number: 2011SP006649

PATIENT
  Age: 52 Year
  Sex: Female

DRUGS (2)
  1. SAPHRIS [Suspect]
     Indication: BIPOLAR DISORDER
     Dosage: 10 MG; BID; SL
     Route: 060
     Dates: start: 20101001
  2. LITHIUM CARBONATE [Concomitant]

REACTIONS (3)
  - SALIVARY HYPERSECRETION [None]
  - DYSPHAGIA [None]
  - OVERDOSE [None]
